FAERS Safety Report 8246540-9 (Version None)
Quarter: 2012Q1

REPORT INFORMATION
  Report Type: 
  Country: None (occurrence: None)
  Receive Date: 20120330
  Receipt Date: 20120319
  Transmission Date: 20120608
  Serious: Yes (Hospitalization)
  Sender: FDA-Public Use
  Company Number: FR-BRISTOL-MYERS SQUIBB COMPANY-16480394

PATIENT
  Age: 69 Year
  Sex: Male

DRUGS (2)
  1. TAXOTERE [Suspect]
     Indication: HEAD AND NECK CANCER
     Dates: start: 20110127, end: 20110127
  2. CETUXIMAB [Suspect]
     Indication: HEAD AND NECK CANCER
     Dates: start: 20110127, end: 20110210

REACTIONS (3)
  - TOOTH ABSCESS [None]
  - BRONCHITIS [None]
  - HYPOPHAGIA [None]
